FAERS Safety Report 12878012 (Version 3)
Quarter: 2017Q1

REPORT INFORMATION
  Report Type: Spontaneous
  Country: US (occurrence: US)
  Receive Date: 20161024
  Receipt Date: 20170311
  Transmission Date: 20170428
  Serious: No
  Sender: FDA-Public Use
  Company Number: US-CELGENEUS-USA-2016103679

PATIENT
  Age: 40 Year
  Sex: Female
  Weight: 61.29 kg

DRUGS (1)
  1. OTEZLA [Suspect]
     Active Substance: APREMILAST
     Indication: PSORIASIS
     Dosage: 60 MILLIGRAM
     Route: 048
     Dates: start: 20150409

REACTIONS (2)
  - Psoriasis [Unknown]
  - Weight decreased [Recovered/Resolved]

NARRATIVE: CASE EVENT DATE: 201609
